FAERS Safety Report 10501573 (Version 1)
Quarter: 2014Q4

REPORT INFORMATION
  Report Type: Spontaneous
  Country: US (occurrence: None)
  Receive Date: 20141006
  Receipt Date: 20141006
  Transmission Date: 20150528
  Serious: Yes (Other)
  Sender: FDA-Public Use
  Company Number: None

PATIENT
  Age: 87 Year
  Sex: Female
  Weight: 80.74 kg

DRUGS (1)
  1. TRADJENTA [Suspect]
     Active Substance: LINAGLIPTIN
     Indication: DIABETES MELLITUS INADEQUATE CONTROL
     Dates: start: 20140901, end: 20140912

REACTIONS (8)
  - Unevaluable event [None]
  - Asthenia [None]
  - Malaise [None]
  - Blood glucose abnormal [None]
  - Dizziness [None]
  - Activities of daily living impaired [None]
  - Decreased activity [None]
  - Oropharyngeal pain [None]

NARRATIVE: CASE EVENT DATE: 20140912
